FAERS Safety Report 7501842-6 (Version None)
Quarter: 2011Q2

REPORT INFORMATION
  Report Type: 
  Country: None (occurrence: None)
  Receive Date: 20110525
  Receipt Date: 20110509
  Transmission Date: 20111010
  Serious: Yes (Hospitalization, Other)
  Sender: FDA-Public Use
  Company Number: US-BAYER-201018950NA

PATIENT
  Age: 21 Year
  Sex: Female
  Weight: 99.773 kg

DRUGS (15)
  1. TOPAMAX [Concomitant]
  2. NEXIUM [Concomitant]
  3. NEURONTIN [Concomitant]
     Dosage: 300 MG, HS
  4. ZANTAC [Concomitant]
  5. ESTRADIOL/TESTOSTERONE CREAM [Concomitant]
  6. AMOXICILLIN [Concomitant]
     Dosage: 250 MG, TID
  7. CARISOPRODOL [Concomitant]
     Dosage: 350 MG, HS
  8. YASMIN [Suspect]
     Indication: CONTRACEPTION
     Route: 048
     Dates: start: 20020101, end: 20080601
  9. ELAVIL [Concomitant]
  10. ESOMEPRAZOLE MAGNESIUM [Concomitant]
     Dosage: 40 MG, QD
  11. AMITRIPTYLINE HCL [Concomitant]
     Dosage: 10 MG, QD
  12. ORAL CONTRACEPTIVE NOS [Concomitant]
     Dosage: UNK
     Dates: start: 20070101, end: 20080101
  13. ALBUTEROL SULFATE AUTOHALER [Concomitant]
  14. YASMIN [Suspect]
     Dosage: UNK
     Dates: start: 20010101, end: 20080101
  15. ATROPINE [Concomitant]

REACTIONS (2)
  - GALLBLADDER DISORDER [None]
  - CHOLECYSTITIS CHRONIC [None]
